FAERS Safety Report 20391649 (Version 1)
Quarter: 2022Q1

REPORT INFORMATION
  Report Type: Spontaneous
  Country: US (occurrence: US)
  Receive Date: 20220128
  Receipt Date: 20220128
  Transmission Date: 20220424
  Serious: No
  Sender: FDA-Public Use
  Company Number: US-PFIZER INC-202101878920

PATIENT
  Age: 69 Year
  Sex: Male
  Weight: 140.61 kg

DRUGS (1)
  1. SILDENAFIL CITRATE [Suspect]
     Active Substance: SILDENAFIL CITRATE
     Indication: Sexual dysfunction
     Dosage: 50 MG, AS NEEDED (ONE TABLET AS NEEDED)
     Dates: start: 20211114

REACTIONS (3)
  - Malaise [Unknown]
  - Headache [Unknown]
  - Mobility decreased [Unknown]

NARRATIVE: CASE EVENT DATE: 20210101
